FAERS Safety Report 11338197 (Version 1)
Quarter: 2015Q3

REPORT INFORMATION
  Report Type: Spontaneous
  Country: US (occurrence: US)
  Receive Date: 20150803
  Receipt Date: 20150803
  Transmission Date: 20151125
  Serious: No
  Sender: FDA-Public Use
  Company Number: US-ELI_LILLY_AND_COMPANY-US200705007253

PATIENT
  Age: 50 Year
  Sex: Female

DRUGS (3)
  1. STRATTERA [Suspect]
     Active Substance: ATOMOXETINE HYDROCHLORIDE
     Dosage: 18 MG, UNK
  2. STRATTERA [Suspect]
     Active Substance: ATOMOXETINE HYDROCHLORIDE
     Dosage: 36 MG, UNK
  3. SSRI [Concomitant]
     Active Substance: UNSPECIFIED INGREDIENT
     Dosage: UNK, UNK

REACTIONS (1)
  - Depressed mood [Recovering/Resolving]
